FAERS Safety Report 12305477 (Version 1)
Quarter: 2016Q2

REPORT INFORMATION
  Report Type: Spontaneous
  Country: US (occurrence: None)
  Receive Date: 20160425
  Receipt Date: 20160425
  Transmission Date: 20160815
  Serious: No
  Sender: FDA-Public Use
  Company Number: None

PATIENT
  Age: 60 Year
  Sex: Female

DRUGS (1)
  1. HUMIRA [Suspect]
     Active Substance: ADALIMUMAB
     Indication: RHEUMATOID ARTHRITIS
     Dosage: 40MG(1 PEN) ONCE A WEEK SUBCUTANEOUSLY
     Route: 058
     Dates: start: 20141014

REACTIONS (1)
  - Depression [None]

NARRATIVE: CASE EVENT DATE: 20151001
